FAERS Safety Report 21506378 (Version 4)
Quarter: 2022Q4

REPORT INFORMATION
  Report Type: Spontaneous
  Country: BR (occurrence: BR)
  Receive Date: 20221026
  Receipt Date: 20221220
  Transmission Date: 20230113
  Serious: No
  Sender: FDA-Public Use
  Company Number: BR-TOLMAR, INC.-22BR037120

PATIENT
  Age: 11 Year
  Sex: Female

DRUGS (2)
  1. ELIGARD [Suspect]
     Active Substance: LEUPROLIDE ACETATE
     Indication: Precocious puberty
     Dosage: 45 MILLIGRAM, Q 6 MONTH
     Route: 058
     Dates: start: 20221013
  2. OMNITROPE [Concomitant]
     Active Substance: SOMATROPIN
     Indication: Product used for unknown indication
     Dosage: UNK

REACTIONS (4)
  - Intercepted product administration error [Unknown]
  - Product physical consistency issue [Unknown]
  - Wrong device used [Unknown]
  - Product colour issue [Unknown]

NARRATIVE: CASE EVENT DATE: 20221013
